FAERS Safety Report 23722362 (Version 2)
Quarter: 2024Q3

REPORT INFORMATION
  Report Type: Spontaneous
  Country: US (occurrence: US)
  Receive Date: 20240409
  Receipt Date: 20240710
  Transmission Date: 20241016
  Serious: No
  Sender: PAREXEL
  Company Number: US-NOVEN PHARMACEUTICALS, INC.-2024-NOV-US000210

PATIENT
  Sex: Male

DRUGS (2)
  1. XELSTRYM [Suspect]
     Active Substance: DEXTROAMPHETAMINE
     Indication: Attention deficit hyperactivity disorder
     Dosage: 9 MG/ UNK
     Route: 062
  2. XELSTRYM [Suspect]
     Active Substance: DEXTROAMPHETAMINE
     Dosage: 4.5 MG/ UNK
     Route: 062

REACTIONS (5)
  - Application site pain [Recovered/Resolved]
  - Product residue present [Not Recovered/Not Resolved]
  - Product administration error [Not Recovered/Not Resolved]
  - Product storage error [Not Recovered/Not Resolved]
  - Product adhesion issue [Not Recovered/Not Resolved]
